FAERS Safety Report 6253514-6 (Version None)
Quarter: 2009Q3

REPORT INFORMATION
  Report Type: 
  Country: None (occurrence: None)
  Receive Date: 20090701
  Receipt Date: 20090625
  Transmission Date: 20100115
  Serious: Yes (Death, Life-Threatening, Hospitalization, Other)
  Sender: FDA-Public Use
  Company Number: US-MYLANLABS-2008S1004034

PATIENT
  Age: 45 Year
  Sex: Female
  Weight: 67 kg

DRUGS (8)
  1. HUMIRA [Suspect]
     Indication: RHEUMATOID ARTHRITIS
     Route: 058
     Dates: start: 20070731, end: 20071120
  2. METHOTREXATE [Suspect]
     Indication: RHEUMATOID ARTHRITIS
     Route: 048
     Dates: start: 20070731, end: 20071124
  3. ETORICOXIB [Concomitant]
     Indication: RHEUMATOID ARTHRITIS
     Dates: start: 20070101, end: 20070705
  4. PREDNISONE [Concomitant]
     Indication: RHEUMATOID ARTHRITIS
     Dates: start: 20070101
  5. FOLIC ACID [Concomitant]
     Dates: start: 20070802
  6. PARACETAMOL [Concomitant]
     Indication: ANALGESIC THERAPY
     Dates: start: 20070829
  7. DICLOFENAC [Concomitant]
     Indication: RHEUMATOID ARTHRITIS
     Dates: start: 20070829
  8. PINAVERIUM BROMIDE [Concomitant]
     Indication: COLITIS
     Dates: start: 20071127, end: 20071203

REACTIONS (4)
  - CARDIO-RESPIRATORY ARREST [None]
  - INTESTINAL PERFORATION [None]
  - PERITONEAL TUBERCULOSIS [None]
  - SEPTIC SHOCK [None]
